FAERS Safety Report 7927880-7 (Version None)
Quarter: 2011Q4

REPORT INFORMATION
  Report Type: 
  Country: None (occurrence: None)
  Receive Date: 20111118
  Receipt Date: 20111115
  Transmission Date: 20120403
  Serious: Yes (Hospitalization, Other)
  Sender: FDA-Public Use
  Company Number: JP-PFIZER INC-2011267581

PATIENT
  Age: 45 Year
  Sex: Female

DRUGS (2)
  1. CARBAMAZEPINE [Suspect]
     Indication: NEURALGIA
     Dosage: 100 MG, 1X/DAY
  2. GABAPENTIN [Suspect]
     Indication: NEURALGIA
     Dosage: 600 MG/DAY
     Route: 048

REACTIONS (8)
  - NEUROLEPTIC MALIGNANT SYNDROME [None]
  - LUNG DISORDER [None]
  - SUICIDE ATTEMPT [None]
  - PNEUMONIA ASPIRATION [None]
  - OVERDOSE [None]
  - TOXICITY TO VARIOUS AGENTS [None]
  - LIVER DISORDER [None]
  - RHABDOMYOLYSIS [None]
